FAERS Safety Report 11874295 (Version 1)
Quarter: 2015Q4

REPORT INFORMATION
  Report Type: Other
  Country: AU (occurrence: AU)
  Receive Date: 20151229
  Receipt Date: 20151229
  Transmission Date: 20160305
  Serious: Yes (Other)
  Sender: FDA-Public Use
  Company Number: AU-LUPIN PHARMACEUTICALS INC.-2015-04355

PATIENT
  Age: 29 Year
  Sex: Female

DRUGS (6)
  1. INSULIN [Concomitant]
     Active Substance: INSULIN NOS
     Indication: TYPE 2 DIABETES MELLITUS
     Dosage: 116 UNITS
     Route: 065
  2. GENTAMICIN. [Suspect]
     Active Substance: GENTAMICIN
     Indication: FLANK PAIN
     Route: 065
  3. CEFTRIAXONE. [Concomitant]
     Active Substance: CEFTRIAXONE
     Indication: PYREXIA
  4. DICLOFENAC [Suspect]
     Active Substance: DICLOFENAC
     Indication: PAIN
     Route: 065
  5. GENTAMICIN. [Suspect]
     Active Substance: GENTAMICIN
     Indication: PYREXIA
  6. CEFTRIAXONE. [Concomitant]
     Active Substance: CEFTRIAXONE
     Indication: FLANK PAIN
     Route: 065

REACTIONS (1)
  - Tubulointerstitial nephritis [Recovering/Resolving]
